FAERS Safety Report 24978325 (Version 2)
Quarter: 2025Q1

REPORT INFORMATION
  Report Type: Report from Study
  Country: DO (occurrence: DO)
  Receive Date: 20250217
  Receipt Date: 20250318
  Transmission Date: 20250409
  Serious: Yes (Life-Threatening, Hospitalization, Other)
  Sender: JOHNSON AND JOHNSON
  Company Number: DO-JNJFOC-20250170997

PATIENT
  Age: 90 Year
  Sex: Female
  Weight: 79 kg

DRUGS (1)
  1. DARZALEX FASPRO [Suspect]
     Active Substance: DARATUMUMAB\HYALURONIDASE-FIHJ
     Indication: Plasma cell myeloma
     Route: 058

REACTIONS (8)
  - Multiple organ dysfunction syndrome [Not Recovered/Not Resolved]
  - COVID-19 [Unknown]
  - Influenza [Unknown]
  - Pneumonia [Unknown]
  - Pulmonary oedema [Not Recovered/Not Resolved]
  - Pneumonia fungal [Unknown]
  - Bacterial infection [Unknown]
  - Gait inability [Unknown]

NARRATIVE: CASE EVENT DATE: 20241201
